FAERS Safety Report 9780759 (Version 3)
Quarter: 2014Q1

REPORT INFORMATION
  Report Type: Spontaneous
  Country: JP (occurrence: JP)
  Receive Date: 20131224
  Receipt Date: 20140203
  Transmission Date: 20141002
  Serious: Yes (Death, Hospitalization, Other)
  Sender: FDA-Public Use
  Company Number: PHHY2013JP100637

PATIENT
  Age: 70 Year
  Sex: Male
  Weight: 66 kg

DRUGS (10)
  1. ZOMETA [Suspect]
     Indication: HYPERCALCAEMIA
     Dosage: 4 MG, (PER ADMINISTRATION)
     Route: 041
     Dates: start: 20130906, end: 20130906
  2. MUCODYNE [Concomitant]
     Dosage: 1000 MG, UNK
     Route: 048
     Dates: start: 20130813
  3. THEODUR [Concomitant]
     Dosage: 400 MG, UNK
     Route: 048
     Dates: start: 20130813
  4. CLINORIL [Concomitant]
     Indication: PAIN
     Dosage: 300 MG, UNK
     Route: 048
     Dates: start: 20130813
  5. TAKEPRON [Concomitant]
     Indication: GASTROINTESTINAL DISORDER
     Dosage: 30 MG, UNK
     Route: 048
     Dates: start: 20130813
  6. BETAMETHASONE [Concomitant]
     Dosage: 2 MG, UNK
     Route: 048
     Dates: start: 20130813
  7. HOKUNALIN [Concomitant]
     Dosage: 2 MG, UNK
     Route: 048
     Dates: start: 20130813
  8. LULLAN [Concomitant]
     Dosage: 12 MG, UNK
     Route: 048
     Dates: start: 20130813
  9. MIYA BM [Concomitant]
     Indication: CONSTIPATION PROPHYLAXIS
     Dosage: 6 DF, UNK
     Route: 048
     Dates: start: 20130813
  10. MS CONTIN [Concomitant]
     Indication: PAIN
     Dosage: 30 MG, UNK
     Route: 048
     Dates: start: 20130813

REACTIONS (12)
  - Squamous cell carcinoma of lung [Fatal]
  - Blood pressure increased [Recovered/Resolved]
  - Tremor [Recovered/Resolved]
  - Oxygen saturation decreased [Recovered/Resolved]
  - Cyanosis [Recovered/Resolved]
  - Chills [Recovered/Resolved]
  - Blood pressure diastolic decreased [Unknown]
  - Dyspnoea [Unknown]
  - Hypersensitivity [Recovered/Resolved]
  - Aspartate aminotransferase [Unknown]
  - Alanine aminotransferase [Unknown]
  - Blood alkaline phosphatase increased [Unknown]
